FAERS Safety Report 5585483-6 (Version None)
Quarter: 2008Q1

REPORT INFORMATION
  Report Type: 
  Country: None (occurrence: None)
  Receive Date: 20080109
  Receipt Date: 20071214
  Transmission Date: 20080703
  Serious: Yes (Other)
  Sender: FDA-Public Use
  Company Number: US-BAYER-JP-2007-043180

PATIENT
  Age: 49 Year
  Sex: Male

DRUGS (5)
  1. SOTALOL HCL [Suspect]
     Indication: ATRIAL FIBRILLATION
     Dosage: UNIT DOSE: 40 MG
     Route: 048
     Dates: start: 20060324, end: 20060324
  2. ASPIRIN [Concomitant]
     Route: 048
     Dates: start: 20060324, end: 20060324
  3. ARTIST [Concomitant]
     Route: 048
     Dates: start: 20060324, end: 20060418
  4. LASIX [Concomitant]
     Route: 048
     Dates: start: 20060324, end: 20060324
  5. ALDACTONE [Concomitant]
     Route: 048
     Dates: start: 20060324, end: 20060324

REACTIONS (2)
  - ATRIAL FIBRILLATION [None]
  - SHOCK [None]
